FAERS Safety Report 8862751 (Version 1)
Quarter: 2012Q4

REPORT INFORMATION
  Report Type: 
  Country: US (occurrence: US)
  Receive Date: 20121026
  Receipt Date: 20121026
  Transmission Date: 20130627
  Serious: No
  Sender: FDA-Public Use
  Company Number: US-ALLERGAN-1212017US

PATIENT
  Age: 80 Year
  Sex: Female

DRUGS (3)
  1. ALPHAGAN P [Suspect]
     Indication: DRUG USE FOR UNKNOWN INDICATION
     Dosage: 2 Gtt, tid
     Route: 047
     Dates: end: 201208
  2. RESTASIS� [Concomitant]
     Indication: DRY EYES
     Dosage: 2 Gtt, bid
     Route: 047
  3. COMBIGAN[R] [Concomitant]
     Indication: DRUG USE FOR UNKNOWN INDICATION

REACTIONS (4)
  - Eye colour change [Recovered/Resolved]
  - Scleral discolouration [Recovered/Resolved]
  - Eye irritation [Recovered/Resolved]
  - Ocular hyperaemia [Recovered/Resolved]
